FAERS Safety Report 19059003 (Version 1)
Quarter: 2021Q1

REPORT INFORMATION
  Report Type: Spontaneous
  Country: US (occurrence: US)
  Receive Date: 20210325
  Receipt Date: 20210325
  Transmission Date: 20210420
  Serious: Yes (Disabling, Other)
  Sender: FDA-Public Use
  Company Number: US-PURDUE-USA-2020-0202870

PATIENT
  Sex: Male

DRUGS (1)
  1. MSIR TABLETS [Suspect]
     Active Substance: MORPHINE SULFATE
     Indication: FOETAL EXPOSURE DURING PREGNANCY
     Dosage: UNKNOWN
     Route: 064

REACTIONS (5)
  - Developmental delay [Not Recovered/Not Resolved]
  - Brain injury [Unknown]
  - Resuscitation [Unknown]
  - Foetal exposure during pregnancy [Unknown]
  - Learning disability [Not Recovered/Not Resolved]
